FAERS Safety Report 14112876 (Version 1)
Quarter: 2017Q4

REPORT INFORMATION
  Report Type: Other
  Country: US (occurrence: US)
  Receive Date: 20171022
  Receipt Date: 20171022
  Transmission Date: 20180321
  Serious: Yes (Life-Threatening, Hospitalization, Other)
  Sender: FDA-Public Use
  Company Number: US-MLMSERVICE-20171006-0913392-1

PATIENT
  Age: 61 Year
  Sex: Female

DRUGS (1)
  1. OXYGEN. [Suspect]
     Active Substance: OXYGEN
     Indication: OXYGEN SATURATION DECREASED
     Route: 045

REACTIONS (2)
  - Gastric perforation [Recovered/Resolved]
  - Pneumoperitoneum [Recovered/Resolved]
